FAERS Safety Report 17483260 (Version 1)
Quarter: 2020Q1

REPORT INFORMATION
  Report Type: Spontaneous
  Country: US (occurrence: US)
  Receive Date: 20200218
  Receipt Date: 20200218
  Transmission Date: 20200409
  Serious: Yes (Hospitalization)
  Sender: FDA-Public Use
  Company Number: None

PATIENT
  Age: 62 Year
  Sex: Male
  Weight: 93.5 kg

DRUGS (1)
  1. DAUNORUBICIN [Suspect]
     Active Substance: DAUNORUBICIN
     Dates: start: 20191222

REACTIONS (5)
  - Platelet count decreased [None]
  - Dyspnoea [None]
  - Pyrexia [None]
  - Anaemia [None]
  - Unevaluable event [None]

NARRATIVE: CASE EVENT DATE: 20200216
